FAERS Safety Report 16000770 (Version 1)
Quarter: 2019Q1

REPORT INFORMATION
  Report Type: Spontaneous
  Country: FR (occurrence: FR)
  Receive Date: 20190225
  Receipt Date: 20190225
  Transmission Date: 20190418
  Serious: Yes (Other)
  Sender: FDA-Public Use
  Company Number: FR-PFIZER INC-2019076995

PATIENT
  Age: 67 Year
  Sex: Male
  Weight: 62 kg

DRUGS (10)
  1. DAPTOMYCINE [Concomitant]
     Active Substance: DAPTOMYCIN
     Indication: ENDOCARDITIS
     Dosage: UNK
     Route: 042
     Dates: start: 20181031, end: 20181102
  2. AMOXICILLIN. [Concomitant]
     Active Substance: AMOXICILLIN
     Indication: ENDOCARDITIS
     Dosage: 9 G, 1X/DAY
     Route: 042
     Dates: start: 20181020, end: 20181030
  3. CLARISCAN [Concomitant]
     Active Substance: GADOTERATE MEGLUMINE
     Indication: NUCLEAR MAGNETIC RESONANCE IMAGING
     Dosage: UNK
     Route: 042
     Dates: start: 20181101, end: 20181101
  4. DILANTIN [Suspect]
     Active Substance: PHENYTOIN
     Indication: ELECTROENCEPHALOGRAM ABNORMAL
     Dosage: 300 MG, 1X/DAY
     Route: 041
     Dates: start: 20181106, end: 20181110
  5. GENTAMICINE [GENTAMICIN] [Concomitant]
     Active Substance: GENTAMICIN
     Indication: ENDOCARDITIS
     Dosage: UNK
     Route: 042
     Dates: start: 20181031, end: 20181031
  6. XENETIX [Concomitant]
     Active Substance: IOBITRIDOL
     Indication: COMPUTERISED TOMOGRAM
     Dosage: 90 ML, SINGLE
     Route: 042
     Dates: start: 20181030, end: 20181030
  7. AMOXICILLIN. [Suspect]
     Active Substance: AMOXICILLIN
     Indication: ENDOCARDITIS
     Dosage: 6 G, 1X/DAY
     Route: 042
     Dates: start: 20181102, end: 20181109
  8. ORBENINE [Concomitant]
     Active Substance: CLOXACILLIN SODIUM
     Indication: ENDOCARDITIS
     Dosage: 12 G, DAILY
     Route: 042
     Dates: start: 20181031, end: 20181102
  9. LEVOFLOXACINE [LEVOFLOXACIN] [Concomitant]
     Active Substance: LEVOFLOXACIN
     Indication: ENDOCARDITIS
     Dosage: 500 MG, 1X/DAY
     Route: 048
     Dates: start: 20181020, end: 20181030
  10. KEPPRA [Concomitant]
     Active Substance: LEVETIRACETAM
     Indication: SEIZURE
     Dosage: 3000 MG, DAILY
     Route: 048
     Dates: start: 20181029

REACTIONS (2)
  - Prescribed underdose [Recovered/Resolved]
  - Acute kidney injury [Recovered/Resolved]

NARRATIVE: CASE EVENT DATE: 20181106
